FAERS Safety Report 8473453-X (Version None)
Quarter: 2012Q2

REPORT INFORMATION
  Report Type: 
  Country: None (occurrence: None)
  Receive Date: 20120628
  Receipt Date: 20120614
  Transmission Date: 20120825
  Serious: Yes (Other)
  Sender: FDA-Public Use
  Company Number: US-JNJCP-30000112426

PATIENT
  Age: 7 Month
  Sex: Male

DRUGS (1)
  1. NEUTROGENA PRODUCTS [Suspect]
     Indication: PRODUCT USED FOR UNKNOWN INDICATION
     Route: 061

REACTIONS (2)
  - COUGH [None]
  - SNEEZING [None]
